FAERS Safety Report 17336498 (Version 1)
Quarter: 2020Q1

REPORT INFORMATION
  Report Type: Report from Study
  Country: US (occurrence: US)
  Receive Date: 20200128
  Receipt Date: 20200128
  Transmission Date: 20200409
  Serious: Yes (Other)
  Sender: FDA-Public Use
  Company Number: US-PFIZER INC-2019353115

PATIENT
  Age: 59 Year
  Sex: Female

DRUGS (2)
  1. IBRANCE [Suspect]
     Active Substance: PALBOCICLIB
     Indication: BREAST CANCER METASTATIC
     Dosage: 125 MG, CYCLIC (DAILY FOR 21 DAYS OF THE 28-DAY CYCLE)
     Route: 048
     Dates: start: 20190803, end: 20191204
  2. IBRANCE [Suspect]
     Active Substance: PALBOCICLIB
     Dosage: 100 MG, CYCLIC (DAILY FOR 21 DAYS OF THE 28-DAY CYCLE)
     Route: 048
     Dates: start: 20191204

REACTIONS (13)
  - Constipation [Recovering/Resolving]
  - Abdominal discomfort [Recovering/Resolving]
  - Neutrophil count decreased [Recovering/Resolving]
  - Nausea [Recovering/Resolving]
  - Dehydration [Unknown]
  - Loss of consciousness [Unknown]
  - Dyspepsia [Recovering/Resolving]
  - Influenza like illness [Recovered/Resolved]
  - Fatigue [Recovering/Resolving]
  - Diarrhoea [Recovering/Resolving]
  - Influenza [Recovered/Resolved]
  - Insomnia [Recovering/Resolving]
  - Headache [Recovering/Resolving]

NARRATIVE: CASE EVENT DATE: 2019
